FAERS Safety Report 4470591-3 (Version None)
Quarter: 2004Q4

REPORT INFORMATION
  Report Type: 
  Country: None (occurrence: None)
  Receive Date: 20041001
  Receipt Date: 20040927
  Transmission Date: 20050328
  Serious: Yes (Hospitalization)
  Sender: FDA-Public Use
  Company Number: J081-232-3583

PATIENT
  Age: 82 Year
  Sex: Female
  Weight: 47.5 kg

DRUGS (4)
  1. DONEPEZIL HCL [Suspect]
     Indication: DEMENTIA ALZHEIMER'S TYPE
     Dosage: ORAL  : 3 MG, 1 IN 1 D, ORAL : 5 MG , 1 IN 1 D, ORAL : 10 MG, 1 IN 1 D, ORAL
     Route: 048
     Dates: end: 20040413
  2. DONEPEZIL HCL [Suspect]
     Indication: DEMENTIA ALZHEIMER'S TYPE
     Dosage: ORAL  : 3 MG, 1 IN 1 D, ORAL : 5 MG , 1 IN 1 D, ORAL : 10 MG, 1 IN 1 D, ORAL
     Route: 048
     Dates: start: 20040414, end: 20040427
  3. DONEPEZIL HCL [Suspect]
     Indication: DEMENTIA ALZHEIMER'S TYPE
     Dosage: ORAL  : 3 MG, 1 IN 1 D, ORAL : 5 MG , 1 IN 1 D, ORAL : 10 MG, 1 IN 1 D, ORAL
     Route: 048
     Dates: start: 20040428, end: 20040525
  4. DONEPEZIL HCL [Suspect]
     Indication: DEMENTIA ALZHEIMER'S TYPE
     Dosage: ORAL  : 3 MG, 1 IN 1 D, ORAL : 5 MG , 1 IN 1 D, ORAL : 10 MG, 1 IN 1 D, ORAL
     Route: 048
     Dates: start: 20040526, end: 20040924

REACTIONS (4)
  - DYSPHAGIA [None]
  - MASTICATION DISORDER [None]
  - NASOPHARYNGITIS [None]
  - SOMNOLENCE [None]
